FAERS Safety Report 10151920 (Version 1)
Quarter: 2014Q2

REPORT INFORMATION
  Report Type: Spontaneous
  Country: US (occurrence: None)
  Receive Date: 20140501
  Receipt Date: 20140501
  Transmission Date: 20141212
  Serious: Yes (Other)
  Sender: FDA-Public Use
  Company Number: 2014AP002669

PATIENT
  Sex: Female

DRUGS (2)
  1. ALENDRONATE SODIUM (ALENDRONATE) TABLET [Suspect]
     Indication: OSTEOPOROSIS
  2. FOSAMAX (ALENDRONATE SODIUM) [Suspect]
     Indication: OSTEOPOROSIS

REACTIONS (5)
  - Femur fracture [None]
  - Injury [None]
  - Anxiety [None]
  - Emotional distress [None]
  - Pain [None]
